FAERS Safety Report 8407675-0 (Version None)
Quarter: 2012Q2

REPORT INFORMATION
  Report Type: 
  Country: None (occurrence: None)
  Receive Date: 20120604
  Receipt Date: 20120530
  Transmission Date: 20120825
  Serious: Yes (Other)
  Sender: FDA-Public Use
  Company Number: US-PFIZER INC-2012011077

PATIENT
  Sex: Female
  Weight: 56.689 kg

DRUGS (2)
  1. IBUPROFEN (ADVIL) [Suspect]
     Indication: HYPOTONIA
  2. IBUPROFEN (ADVIL) [Suspect]
     Indication: HEADACHE
     Dosage: UNK, DAILY
     Route: 048
     Dates: start: 20111101, end: 20111101

REACTIONS (4)
  - EPISTAXIS [None]
  - MALAISE [None]
  - DYSSTASIA [None]
  - GASTRIC HAEMORRHAGE [None]
